FAERS Safety Report 13957784 (Version 1)
Quarter: 2017Q3

REPORT INFORMATION
  Report Type: Spontaneous
  Country: US (occurrence: US)
  Receive Date: 20170911
  Receipt Date: 20170911
  Transmission Date: 20171128
  Serious: No
  Sender: FDA-Public Use
  Company Number: US-ROCHE-1102666

PATIENT
  Age: 48 Year
  Sex: Female
  Weight: 99.43 kg

DRUGS (4)
  1. IMURAN [Suspect]
     Active Substance: AZATHIOPRINE
     Indication: SENSORY LOSS
     Dosage: INCREASE TO 150 MG
     Route: 048
     Dates: start: 201010
  2. METHOTREXATE. [Suspect]
     Active Substance: METHOTREXATE
     Indication: FATIGUE
     Dosage: INCREASE TO 10 MG
     Route: 048
     Dates: start: 201010
  3. RITUXAN [Suspect]
     Active Substance: RITUXIMAB
     Indication: NEUROMYELITIS OPTICA SPECTRUM DISORDER
     Route: 042
     Dates: start: 201110
  4. SOLU-MEDROL [Concomitant]
     Active Substance: METHYLPREDNISOLONE SODIUM SUCCINATE

REACTIONS (1)
  - Alopecia [Recovered/Resolved with Sequelae]

NARRATIVE: CASE EVENT DATE: 201012
